FAERS Safety Report 6659058-1 (Version None)
Quarter: 2010Q1

REPORT INFORMATION
  Report Type: 
  Country: None (occurrence: None)
  Receive Date: 20100330
  Receipt Date: 20100322
  Transmission Date: 20100710
  Serious: Yes (Other)
  Sender: FDA-Public Use
  Company Number: DE-PFIZER INC-2010036412

PATIENT
  Sex: Male

DRUGS (1)
  1. SORTIS [Suspect]
     Dosage: 20 MG, UNK
     Route: 048
     Dates: start: 20080101

REACTIONS (2)
  - DIPLOPIA [None]
  - VISION BLURRED [None]
